FAERS Safety Report 5614021-4 (Version None)
Quarter: 2008Q1

REPORT INFORMATION
  Report Type: 
  Country: None (occurrence: None)
  Receive Date: 20080205
  Receipt Date: 20080130
  Transmission Date: 20080703
  Serious: Yes (Hospitalization)
  Sender: FDA-Public Use
  Company Number: HK-AVENTIS-200811009GDDC

PATIENT
  Age: 32 Year
  Sex: Female
  Weight: 56.6 kg

DRUGS (5)
  1. DOCETAXEL [Suspect]
     Indication: BREAST CANCER
     Route: 042
     Dates: start: 20071220, end: 20071220
  2. CYCLOPHOSPHAMIDE [Suspect]
     Indication: BREAST CANCER
     Route: 042
     Dates: start: 20071130, end: 20071220
  3. DEXAMETHASONE TAB [Concomitant]
     Dates: start: 20071219, end: 20071221
  4. FAMOTIDINE [Concomitant]
     Dates: start: 20071219, end: 20071221
  5. CIPROFLOXACIN [Concomitant]
     Dates: start: 20071224, end: 20080102

REACTIONS (5)
  - ABDOMINAL ABSCESS [None]
  - ABSCESS RUPTURE [None]
  - APPENDICITIS [None]
  - PERITONITIS [None]
  - POSTOPERATIVE WOUND COMPLICATION [None]
